FAERS Safety Report 9985183 (Version 1)
Quarter: 2014Q1

REPORT INFORMATION
  Report Type: Report from Study
  Country: US (occurrence: US)
  Receive Date: 20140307
  Receipt Date: 20140307
  Transmission Date: 20141002
  Serious: Yes (Other)
  Sender: FDA-Public Use
  Company Number: US-ABBVIE-14P-163-1185265-00

PATIENT
  Age: 51 Year
  Sex: Female

DRUGS (2)
  1. HUMIRA [Suspect]
     Indication: CROHN^S DISEASE
     Route: 058
     Dates: end: 201309
  2. HUMIRA [Suspect]
     Route: 058
     Dates: start: 201310

REACTIONS (3)
  - Small intestinal resection [Unknown]
  - Hernia repair [Unknown]
  - Tooth fracture [Unknown]
